FAERS Safety Report 7745769-3 (Version None)
Quarter: 2011Q3

REPORT INFORMATION
  Report Type: 
  Country: None (occurrence: None)
  Receive Date: 20110830
  Receipt Date: 20110817
  Transmission Date: 20111222
  Serious: Yes (Other)
  Sender: FDA-Public Use
  Company Number: 2011SP028881

PATIENT
  Age: 20 Year
  Sex: Female
  Weight: 95.3 kg

DRUGS (2)
  1. IMPLANON [Suspect]
     Dosage: 1 DF
     Dates: start: 20100803
  2. IMPLANON [Suspect]

REACTIONS (3)
  - PREGNANCY WITH IMPLANT CONTRACEPTIVE [None]
  - ABORTION SPONTANEOUS [None]
  - MATERNAL EXPOSURE DURING PREGNANCY [None]
